FAERS Safety Report 21403348 (Version 1)
Quarter: 2022Q4

REPORT INFORMATION
  Report Type: Spontaneous
  Country: US (occurrence: US)
  Receive Date: 20221003
  Receipt Date: 20221003
  Transmission Date: 20230113
  Serious: No
  Sender: FDA-Public Use
  Company Number: US-BEH-2022150083

PATIENT
  Sex: Male

DRUGS (4)
  1. IDELVION [Suspect]
     Active Substance: COAGULATION FACTOR IX RECOMBINANT HUMAN
     Indication: Factor IX deficiency
     Dosage: 5000 INTERNATIONAL UNIT, QW
     Route: 042
     Dates: start: 202202
  2. IDELVION [Suspect]
     Active Substance: COAGULATION FACTOR IX RECOMBINANT HUMAN
     Indication: Factor IX deficiency
     Dosage: 5000 INTERNATIONAL UNIT, QW
     Route: 042
     Dates: start: 202202
  3. IDELVION [Suspect]
     Active Substance: COAGULATION FACTOR IX RECOMBINANT HUMAN
     Dosage: 5000 INTERNATIONAL UNIT, QOD
     Route: 042
     Dates: start: 20220217
  4. IDELVION [Suspect]
     Active Substance: COAGULATION FACTOR IX RECOMBINANT HUMAN
     Dosage: 5000 INTERNATIONAL UNIT, QOD
     Route: 042
     Dates: start: 20220217

REACTIONS (2)
  - Cardiovascular disorder [Unknown]
  - Chest pain [Unknown]
